FAERS Safety Report 21960290 (Version 2)
Quarter: 2023Q1

REPORT INFORMATION
  Report Type: Report from Study
  Country: US (occurrence: US)
  Receive Date: 20230207
  Receipt Date: 20230216
  Transmission Date: 20230418
  Serious: Yes (Hospitalization)
  Sender: FDA-Public Use
  Company Number: US-GBT-019805

PATIENT
  Age: 23 Year
  Sex: Male

DRUGS (11)
  1. OXBRYTA [Suspect]
     Active Substance: VOXELOTOR
     Indication: Anaemia
     Dates: start: 20200109
  2. MS CONTIN [Concomitant]
     Active Substance: MORPHINE SULFATE
     Indication: Sickle cell disease
     Route: 048
     Dates: start: 20191209, end: 20220520
  3. GLUTAMINE [Concomitant]
     Active Substance: GLUTAMINE
     Indication: Sickle cell disease
     Route: 048
     Dates: start: 20190603
  4. HYDROXYUREA [Concomitant]
     Active Substance: HYDROXYUREA
     Indication: Sickle cell disease
     Route: 048
     Dates: start: 20160926
  5. OXYCODONE [Concomitant]
     Active Substance: OXYCODONE
     Indication: Sickle cell disease
     Dosage: Q4H PRN
     Route: 048
     Dates: start: 20160926, end: 20201106
  6. COVID-19 vacc, mRNA (Pfizer) [Concomitant]
     Indication: Prophylaxis
     Dosage: 30 MCG INTRAMUSCULAR
     Dates: start: 20210818, end: 20210818
  7. CYCLOBENZAPRINE [Concomitant]
     Active Substance: CYCLOBENZAPRINE
     Indication: Sickle cell disease
     Dosage: BID PRN
     Route: 048
     Dates: start: 20210507, end: 20210606
  8. IBUPROFEN [Concomitant]
     Active Substance: IBUPROFEN
     Indication: Sickle cell disease
     Dosage: Q6H PRN
     Route: 048
     Dates: start: 20151111, end: 20210408
  9. Ergocalciferol (Vitamin D2) 50,000 Unit capsule [Concomitant]
     Indication: Vitamin D deficiency
     Dosage: 50,000 UNITS  EVERY 14 DAYS
     Route: 048
  10. ELIQUIS [Concomitant]
     Active Substance: APIXABAN
     Indication: Sickle cell disease
     Route: 048
     Dates: start: 20210317, end: 20211115
  11. MORPHINE [Concomitant]
     Active Substance: MORPHINE
     Indication: Sickle cell disease
     Dosage: ONCE
     Route: 042
     Dates: start: 20210730, end: 20210730

REACTIONS (3)
  - Acute chest syndrome [Recovered/Resolved]
  - Sickle cell anaemia with crisis [Recovered/Resolved]
  - Tooth impacted [Recovered/Resolved]

NARRATIVE: CASE EVENT DATE: 20210427
